FAERS Safety Report 11063482 (Version 1)
Quarter: 2015Q2

REPORT INFORMATION
  Report Type: Spontaneous
  Country: US (occurrence: US)
  Receive Date: 20150424
  Receipt Date: 20150424
  Transmission Date: 20150821
  Serious: No
  Sender: FDA-Public Use
  Company Number: US-ALKERMES INC.-ALK-2014-003607

PATIENT

DRUGS (4)
  1. CRAMP PREVENT [Concomitant]
     Indication: PRODUCT USED FOR UNKNOWN INDICATION
     Dosage: UNK
  2. ZOFRAN [Concomitant]
     Active Substance: ONDANSETRON HYDROCHLORIDE
     Indication: PRODUCT USED FOR UNKNOWN INDICATION
     Dosage: UNK
  3. VIVITROL [Suspect]
     Active Substance: NALTREXONE
     Indication: DRUG DEPENDENCE
     Dosage: 380 MG, QMO
     Route: 030
     Dates: start: 20140908
  4. ANTIDEPRESSANTS [Concomitant]
     Active Substance: UNSPECIFIED INGREDIENT
     Indication: PRODUCT USED FOR UNKNOWN INDICATION
     Dosage: UNK
     Dates: start: 20141201

REACTIONS (17)
  - Sleep-related eating disorder [Recovered/Resolved]
  - Drug abuse [Unknown]
  - Restlessness [Unknown]
  - Drug screen positive [Unknown]
  - Apnoea [Recovered/Resolved]
  - Middle insomnia [Recovered/Resolved]
  - Nocturia [Recovered/Resolved]
  - Drug withdrawal syndrome [Recovered/Resolved]
  - Fatigue [Recovered/Resolved]
  - Anxiety [Unknown]
  - Drug dependence [Recovered/Resolved]
  - Appetite disorder [Recovered/Resolved]
  - Drug effect decreased [Unknown]
  - Agitation [Recovered/Resolved]
  - Drug administration error [Recovered/Resolved]
  - Blood pressure increased [Recovered/Resolved]
  - Irritability [Unknown]

NARRATIVE: CASE EVENT DATE: 2014
